FAERS Safety Report 13568757 (Version 1)
Quarter: 2017Q2

REPORT INFORMATION
  Report Type: Spontaneous
  Country: US (occurrence: US)
  Receive Date: 20170522
  Receipt Date: 20170522
  Transmission Date: 20170830
  Serious: No
  Sender: FDA-Public Use
  Company Number: US-COLLEGIUM PHARMACEUTICAL, INC.-2017CGM00032

PATIENT
  Sex: Male

DRUGS (2)
  1. XTAMPZA ER [Suspect]
     Active Substance: OXYCODONE
     Dosage: UNK, 2X/DAY
     Dates: start: 201702, end: 20170318
  2. XTAMPZA ER [Suspect]
     Active Substance: OXYCODONE
     Dosage: UNK
     Dates: start: 201703

REACTIONS (6)
  - Headache [Unknown]
  - Drug dose titration not performed [Unknown]
  - Abdominal pain upper [Unknown]
  - Vomiting [Unknown]
  - Tremor [Unknown]
  - Abdominal distension [Recovering/Resolving]

NARRATIVE: CASE EVENT DATE: 2017
